FAERS Safety Report 9909651 (Version 1)
Quarter: 2014Q1

REPORT INFORMATION
  Report Type: Spontaneous
  Country: IT (occurrence: IT)
  Receive Date: 20140219
  Receipt Date: 20140219
  Transmission Date: 20141002
  Serious: Yes (Other)
  Sender: FDA-Public Use
  Company Number: IT-VIIV HEALTHCARE LIMITED-B0969983A

PATIENT
  Age: 44 Year
  Sex: Female

DRUGS (3)
  1. KIVEXA [Suspect]
     Indication: HIV INFECTION
     Dosage: 1TAB PER DAY
     Route: 048
     Dates: start: 20140129, end: 20140208
  2. VIRAMUNE [Suspect]
     Indication: HIV INFECTION
     Route: 065
     Dates: start: 20140129, end: 20140208
  3. DIBASE [Concomitant]
     Route: 048

REACTIONS (1)
  - Toxic skin eruption [Recovering/Resolving]
